FAERS Safety Report 9559834 (Version 1)
Quarter: 2013Q3

REPORT INFORMATION
  Report Type: Spontaneous
  Country: NO (occurrence: None)
  Receive Date: 20130925
  Receipt Date: 20130925
  Transmission Date: 20140515
  Serious: Yes (Death)
  Sender: FDA-Public Use
  Company Number: 1913442

PATIENT
  Age: 83 Year
  Sex: Female

DRUGS (4)
  1. VINCRISTINE SULFATE [Suspect]
     Indication: SMALL CELL LUNG CANCER
     Dosage: DOSAGE ACCORDING TO PROTOCOL, UNKNOWN, INTRAVENOUS DRIP
     Dates: end: 20130730
  2. DOXORUBICIN [Suspect]
     Indication: SMALL CELL LUNG CANCER
     Dosage: DOSAGE ACCORDING TO PROTOCOL, UKNOWN, INTRAVENOUS DRIP
     Dates: end: 20130730
  3. CYCLOPHOSPHAMIDE [Suspect]
     Indication: SMALL CELL LUNG CANCER
     Dosage: DOSAGE ACCORDING TO PROTOCOL, UNKNOWN, INTRAVENOUS DRIP
     Dates: end: 20130730
  4. ANTIBIOTICS [Concomitant]

REACTIONS (6)
  - Renal failure [None]
  - Febrile neutropenia [None]
  - White blood cell count [None]
  - Incorrect dose administered [None]
  - Condition aggravated [None]
  - Enterococcus test positive [None]
